FAERS Safety Report 5746641-0 (Version None)
Quarter: 2008Q2

REPORT INFORMATION
  Report Type: 
  Country: None (occurrence: None)
  Receive Date: 20080522
  Receipt Date: 20080512
  Transmission Date: 20081010
  Serious: Yes (Other)
  Sender: FDA-Public Use
  Company Number: SK-JNJFOC-20080500005

PATIENT
  Age: 20 Year
  Sex: Female

DRUGS (4)
  1. TOPAMAX [Suspect]
     Indication: EPILEPSY
  2. TOPAMAX [Suspect]
  3. DEPAKENE [Concomitant]
     Indication: EPILEPSY
  4. DEPAKENE [Concomitant]

REACTIONS (3)
  - ANOREXIA NERVOSA [None]
  - CACHEXIA [None]
  - WEIGHT DECREASED [None]
